FAERS Safety Report 4674350-8 (Version None)
Quarter: 2005Q2

REPORT INFORMATION
  Report Type: 
  Country: None (occurrence: None)
  Receive Date: 20050524
  Receipt Date: 20050505
  Transmission Date: 20051028
  Serious: Yes (Hospitalization, Other)
  Sender: FDA-Public Use
  Company Number: USA040567282

PATIENT
  Age: 58 Year
  Sex: Female
  Weight: 73 kg

DRUGS (3)
  1. HUMALOG [Suspect]
     Indication: DIABETES MELLITUS
     Dates: start: 20040201
  2. HUMULIN N [Suspect]
     Indication: DIABETES MELLITUS
     Dosage: 60 U/1 DAY
     Dates: start: 20040201
  3. PREDNISONE TAB [Concomitant]

REACTIONS (22)
  - ARTHRALGIA [None]
  - BLOOD GLUCOSE INCREASED [None]
  - CONTUSION [None]
  - DIABETES MELLITUS INADEQUATE CONTROL [None]
  - DIPLOPIA [None]
  - DIVERTICULITIS [None]
  - DRUG RESISTANCE [None]
  - HEADACHE [None]
  - HYPOGLYCAEMIA [None]
  - INFUSION SITE BRUISING [None]
  - INFUSION SITE SWELLING [None]
  - INJECTION SITE ERYTHEMA [None]
  - INJECTION SITE IRRITATION [None]
  - MIGRAINE [None]
  - MUSCLE TIGHTNESS [None]
  - PAIN IN EXTREMITY [None]
  - PHARMACEUTICAL PRODUCT COMPLAINT [None]
  - POOR QUALITY DRUG ADMINISTERED [None]
  - ROAD TRAFFIC ACCIDENT [None]
  - TREATMENT NONCOMPLIANCE [None]
  - ULCER [None]
  - WEIGHT INCREASED [None]
